FAERS Safety Report 25405388 (Version 1)
Quarter: 2025Q2

REPORT INFORMATION
  Report Type: Spontaneous
  Country: US (occurrence: US)
  Receive Date: 20250606
  Receipt Date: 20250606
  Transmission Date: 20250717
  Serious: Yes (Hospitalization)
  Sender: ROCHE
  Company Number: US-ROCHE-10000303475

PATIENT
  Age: 66 Year
  Sex: Female

DRUGS (1)
  1. ROZLYTREK [Suspect]
     Active Substance: ENTRECTINIB
     Indication: Lung neoplasm malignant
     Route: 048
     Dates: start: 20250327

REACTIONS (4)
  - Fungal oesophagitis [Unknown]
  - Urinary tract infection [Unknown]
  - Blood iron decreased [Unknown]
  - Coagulopathy [Unknown]

NARRATIVE: CASE EVENT DATE: 20250523
